FAERS Safety Report 4302847-9 (Version None)
Quarter: 2004Q1

REPORT INFORMATION
  Report Type: 
  Country: None (occurrence: None)
  Receive Date: 20040220
  Receipt Date: 20040209
  Transmission Date: 20041129
  Serious: Yes (Other)
  Sender: FDA-Public Use
  Company Number: 2004008800

PATIENT
  Age: 59 Year
  Sex: Female
  Weight: 61.6892 kg

DRUGS (3)
  1. PROCARDIA XL [Suspect]
     Indication: CHEST PAIN
     Dosage: 30 MG (DAILY), ORAL
     Route: 048
  2. LORAZEPAM [Concomitant]
  3. SERETIDE MITE (FLUTICASONE PROPIONATE, SALMETEROL XINAFOATE) [Concomitant]

REACTIONS (3)
  - CHROMATOPSIA [None]
  - EYE HAEMORRHAGE [None]
  - VISION BLURRED [None]
